FAERS Safety Report 7243213-6 (Version None)
Quarter: 2011Q1

REPORT INFORMATION
  Report Type: 
  Country: None (occurrence: None)
  Receive Date: 20110125
  Receipt Date: 20100226
  Transmission Date: 20110831
  Serious: Yes (Congenital Anomaly)
  Sender: FDA-Public Use
  Company Number: FR-ROCHE-679445

PATIENT

DRUGS (3)
  1. NORVIR [Suspect]
     Route: 064
     Dates: start: 20070101
  2. INVIRASE [Suspect]
     Route: 064
     Dates: start: 20070101
  3. TRUVADA [Suspect]
     Dosage: 200MG/245MG
     Route: 064
     Dates: start: 20070101

REACTIONS (1)
  - OESOPHAGEAL ATRESIA [None]
